FAERS Safety Report 15857426 (Version 1)
Quarter: 2018Q4

REPORT INFORMATION
  Report Type: Spontaneous
  Country: US (occurrence: US)
  Receive Date: 20181228
  Receipt Date: 20181228
  Transmission Date: 20190205
  Serious: Yes (Disabling)
  Sender: FDA-Public Use
  Company Number: None

PATIENT
  Age: 64 Year
  Sex: Male
  Weight: 99.79 kg

DRUGS (2)
  1. ZIPRASIDONE HCL 60MG [Suspect]
     Active Substance: ZIPRASIDONE HYDROCHLORIDE
     Indication: BIPOLAR DISORDER
     Dates: start: 20181122
  2. DIVALPROEX SODIUM DR [Suspect]
     Active Substance: DIVALPROEX SODIUM
     Indication: BIPOLAR DISORDER
     Dates: start: 20181122

REACTIONS (1)
  - Delusion [None]

NARRATIVE: CASE EVENT DATE: 20181122
